FAERS Safety Report 9095524 (Version 1)
Quarter: 2013Q1

REPORT INFORMATION
  Report Type: Spontaneous
  Country: GR (occurrence: None)
  Receive Date: 20130123
  Receipt Date: 20130123
  Transmission Date: 20140127
  Serious: Yes (Hospitalization)
  Sender: FDA-Public Use
  Company Number: DSM-2013-00094

PATIENT
  Age: 63 Year
  Sex: Female

DRUGS (1)
  1. OLARTAN (OLMESARTAN MEDOXOMIL) (TABLET) (OLMESARTAN MEDOXOMIL) [Suspect]
     Indication: HYPERTENSION
     Route: 048
     Dates: start: 2011

REACTIONS (5)
  - Oedema peripheral [None]
  - Pyrexia [None]
  - Migraine [None]
  - Weight decreased [None]
  - Rash [None]
